FAERS Safety Report 10072021 (Version 1)
Quarter: 2014Q2

REPORT INFORMATION
  Report Type: Spontaneous
  Country: US (occurrence: None)
  Receive Date: 20140410
  Receipt Date: 20140410
  Transmission Date: 20141212
  Serious: Yes (Death, Life-Threatening, Hospitalization)
  Sender: FDA-Public Use
  Company Number: None

PATIENT
  Age: 62 Year
  Sex: Male
  Weight: 74.84 kg

DRUGS (1)
  1. STELARA [Suspect]
     Indication: PSORIASIS
     Dosage: INJECTION 4X PER YEAR

REACTIONS (9)
  - Contusion [None]
  - Peripheral swelling [None]
  - Urinary incontinence [None]
  - Fall [None]
  - Wound [None]
  - Limb injury [None]
  - Staphylococcal infection [None]
  - Renal failure [None]
  - Coma [None]
